FAERS Safety Report 7575639-5 (Version None)
Quarter: 2011Q2

REPORT INFORMATION
  Report Type: 
  Country: None (occurrence: None)
  Receive Date: 20110628
  Receipt Date: 20110624
  Transmission Date: 20111010
  Serious: Yes (Other)
  Sender: FDA-Public Use
  Company Number: IE-BRISTOL-MYERS SQUIBB COMPANY-15721665

PATIENT
  Age: 17 Year
  Sex: Female
  Weight: 66 kg

DRUGS (1)
  1. ABILIFY [Suspect]
     Indication: TOURETTE'S DISORDER
     Dosage: STARTED IN 2005 20MG/DAY.(15MG/DAY)RESTARTED IN FEB2009.WITHDRAWN IN JUN2009
     Route: 048
     Dates: start: 20090301, end: 20100901

REACTIONS (3)
  - SELF-INJURIOUS IDEATION [None]
  - HALLUCINATION, AUDITORY [None]
  - AGGRESSION [None]
